FAERS Safety Report 9555879 (Version 2)
Quarter: 2013Q4

REPORT INFORMATION
  Report Type: Spontaneous
  Country: DE (occurrence: DE)
  Receive Date: 20130926
  Receipt Date: 20131007
  Transmission Date: 20140711
  Serious: No
  Sender: FDA-Public Use
  Company Number: DE-ASTELLAS-2013EU008165

PATIENT
  Age: 58 Year
  Sex: Female

DRUGS (1)
  1. VESIKUR [Suspect]
     Dosage: 10 MG, UID/QD
     Route: 067
     Dates: start: 201309

REACTIONS (2)
  - Off label use [Unknown]
  - Metrorrhagia [Recovered/Resolved]
